FAERS Safety Report 24810242 (Version 1)
Quarter: 2025Q1

REPORT INFORMATION
  Report Type: Spontaneous
  Country: FR (occurrence: FR)
  Receive Date: 20250106
  Receipt Date: 20250106
  Transmission Date: 20250408
  Serious: Yes (Other)
  Sender: TEVA
  Company Number: None

PATIENT
  Age: 11 Year
  Sex: Female

DRUGS (4)
  1. TEMOZOLOMIDE [Suspect]
     Active Substance: TEMOZOLOMIDE
     Indication: Rhabdomyolysis
     Route: 048
     Dates: start: 20241206
  2. CEFIXIME [Suspect]
     Active Substance: CEFIXIME
     Indication: Opportunistic infection prophylaxis
     Route: 048
     Dates: start: 20241204
  3. VINCRISTINE [Suspect]
     Active Substance: VINCRISTINE
     Indication: Rhabdomyolysis
     Route: 042
     Dates: start: 20241205
  4. IRINOTECAN [Suspect]
     Active Substance: IRINOTECAN
     Indication: Rhabdomyolysis
     Route: 042
     Dates: start: 20241205

REACTIONS (1)
  - Rash maculo-papular [Not Recovered/Not Resolved]

NARRATIVE: CASE EVENT DATE: 20241208
